FAERS Safety Report 11707861 (Version 1)
Quarter: 2015Q4

REPORT INFORMATION
  Report Type: Spontaneous
  Country: US (occurrence: US)
  Receive Date: 20151104
  Receipt Date: 20151104
  Transmission Date: 20160304
  Serious: No
  Sender: FDA-Public Use
  Company Number: US-ELI_LILLY_AND_COMPANY-US201103000202

PATIENT
  Age: 68 Year
  Sex: Female

DRUGS (4)
  1. FORTEO [Suspect]
     Active Substance: TERIPARATIDE
     Indication: OSTEOPOROSIS
     Dosage: 20 UG, DAILY (1/D)
     Dates: start: 20110224
  2. ZYRTEC [Concomitant]
     Active Substance: CETIRIZINE HYDROCHLORIDE
     Indication: HYPERSENSITIVITY
  3. AFRIN SINUS [Concomitant]
     Active Substance: OXYMETAZOLINE HYDROCHLORIDE
     Indication: HYPERSENSITIVITY
  4. SIMVASTATIN. [Concomitant]
     Active Substance: SIMVASTATIN
     Indication: BLOOD CHOLESTEROL INCREASED

REACTIONS (13)
  - Balance disorder [Unknown]
  - Mental impairment [Unknown]
  - Dizziness [Unknown]
  - Abdominal discomfort [Unknown]
  - Dizziness postural [Unknown]
  - Anxiety [Unknown]
  - Palpitations [Unknown]
  - Cataract [Unknown]
  - Visual impairment [Unknown]
  - Disturbance in attention [Unknown]
  - Blood pressure decreased [Unknown]
  - Mental disorder [Unknown]
  - Performance fear [Unknown]

NARRATIVE: CASE EVENT DATE: 201102
